FAERS Safety Report 10333436 (Version 1)
Quarter: 2014Q3

REPORT INFORMATION
  Report Type: Spontaneous
  Country: US (occurrence: US)
  Receive Date: 20140722
  Receipt Date: 20140722
  Transmission Date: 20150326
  Serious: No
  Sender: FDA-Public Use
  Company Number: US-SA-2014SA010911

PATIENT
  Age: 37 Year
  Sex: Female

DRUGS (1)
  1. AMBIEN [Suspect]
     Active Substance: ZOLPIDEM TARTRATE
     Route: 048

REACTIONS (5)
  - Hunger [Recovered/Resolved]
  - Insomnia [Unknown]
  - Agitation [Recovered/Resolved]
  - Restlessness [Recovered/Resolved]
  - Vision blurred [Recovered/Resolved]
